FAERS Safety Report 6330007-9 (Version None)
Quarter: 2009Q3

REPORT INFORMATION
  Report Type: 
  Country: None (occurrence: None)
  Receive Date: 20090825
  Receipt Date: 20090811
  Transmission Date: 20100115
  Serious: Yes (Other)
  Sender: FDA-Public Use
  Company Number: B0589288A

PATIENT
  Age: 50 Year
  Sex: Female

DRUGS (4)
  1. AMOXICILLIN TRIHYDRATE [Suspect]
     Indication: WISDOM TEETH REMOVAL
  2. FELODIPINE [Concomitant]
  3. LEVOTHYROXINE SODIUM [Concomitant]
  4. GLYBURIDE AND METFORMIN HYDROCHLORIDE [Concomitant]

REACTIONS (37)
  - ALOPECIA [None]
  - ANAEMIA [None]
  - ANXIETY [None]
  - APHASIA [None]
  - BLOOD THYROID STIMULATING HORMONE INCREASED [None]
  - CANDIDIASIS [None]
  - CHEST PAIN [None]
  - CONJUNCTIVAL HYPERAEMIA [None]
  - CULTURE THROAT POSITIVE [None]
  - CULTURE URINE POSITIVE [None]
  - DISEASE RECURRENCE [None]
  - DYSPHAGIA [None]
  - EMOTIONAL DISTRESS [None]
  - EXCORIATION [None]
  - HEPATITIS [None]
  - HERPES SIMPLEX [None]
  - HYPERGLYCAEMIA [None]
  - INFECTION [None]
  - LEUKOCYTOSIS [None]
  - LOCAL SWELLING [None]
  - LUNG INFILTRATION [None]
  - LYMPHADENITIS [None]
  - MOUTH ULCERATION [None]
  - NECROSIS [None]
  - NIGHT SWEATS [None]
  - ODYNOPHAGIA [None]
  - OESOPHAGITIS [None]
  - PERICARDIAL EFFUSION [None]
  - PYREXIA [None]
  - SINUS TACHYCARDIA [None]
  - SINUSITIS [None]
  - STEVENS-JOHNSON SYNDROME [None]
  - STOMATITIS [None]
  - THROAT IRRITATION [None]
  - THROMBOCYTOSIS [None]
  - TONGUE DISCOLOURATION [None]
  - TONSILLAR HYPERTROPHY [None]
